FAERS Safety Report 7499930-6 (Version None)
Quarter: 2011Q2

REPORT INFORMATION
  Report Type: 
  Country: None (occurrence: None)
  Receive Date: 20110524
  Receipt Date: 20110311
  Transmission Date: 20111010
  Serious: No
  Sender: FDA-Public Use
  Company Number: US-NOVEN-11US001964

PATIENT
  Sex: Male

DRUGS (1)
  1. DAYTRANA [Suspect]
     Indication: ATTENTION DEFICIT/HYPERACTIVITY DISORDER
     Dosage: 10 MG, 9 HRS, QD FOR 3 MONTHS
     Route: 062
     Dates: start: 20100701, end: 20100901

REACTIONS (4)
  - APPLICATION SITE SCAB [None]
  - APPLICATION SITE ERYTHEMA [None]
  - APPLICATION SITE VESICLES [None]
  - APPLICATION SITE RASH [None]
